FAERS Safety Report 6270690-X (Version None)
Quarter: 2009Q3

REPORT INFORMATION
  Report Type: 
  Country: None (occurrence: None)
  Receive Date: 20090716
  Receipt Date: 20090713
  Transmission Date: 20100115
  Serious: Yes (Death)
  Sender: FDA-Public Use
  Company Number: PHHY2009EC28692

PATIENT
  Age: 95 Year
  Sex: Male

DRUGS (2)
  1. DIOVAN [Suspect]
     Indication: HYPERTENSION
     Dosage: 1 DF (160 MG) DAILY
     Route: 048
     Dates: start: 20070109, end: 20080424
  2. ASPIRIN [Concomitant]
     Indication: ISCHAEMIC HEART DISEASE PROPHYLAXIS
     Dosage: 100 MG DAILY

REACTIONS (4)
  - ASTHENIA [None]
  - CARDIAC DISORDER [None]
  - MALAISE [None]
  - MYOCARDIAL INFARCTION [None]
